FAERS Safety Report 8165444-3 (Version None)
Quarter: 2012Q1

REPORT INFORMATION
  Report Type: 
  Country: None (occurrence: None)
  Receive Date: 20120103
  Receipt Date: 20111012
  Transmission Date: 20120608
  Serious: No
  Sender: FDA-Public Use
  Company Number: AE-2011-002271

PATIENT
  Age: 60 Year
  Sex: Male
  Weight: 74.3899 kg

DRUGS (3)
  1. INCIVEK [Suspect]
     Dosage: 2250 MG (750 MG, 1 IN 8 HR)
     Dates: start: 20110828, end: 20110921
  2. RIBAVIRIN [Concomitant]
  3. PEGASUS (PEGINTERFERON ALFA-2A) [Concomitant]

REACTIONS (6)
  - FATIGUE [None]
  - PRURITUS [None]
  - INFLUENZA LIKE ILLNESS [None]
  - DEPRESSION [None]
  - RETCHING [None]
  - ASTHENIA [None]
